FAERS Safety Report 16889657 (Version 2)
Quarter: 2019Q4

REPORT INFORMATION
  Report Type: Spontaneous
  Country: JP (occurrence: JP)
  Receive Date: 20191007
  Receipt Date: 20191101
  Transmission Date: 20200122
  Serious: Yes (Life-Threatening, Hospitalization)
  Sender: FDA-Public Use
  Company Number: JP-PFIZER INC-2019360200

PATIENT
  Age: 79 Year
  Sex: Male
  Weight: 55 kg

DRUGS (2)
  1. CARERAM [Concomitant]
     Active Substance: IGURATIMOD
     Indication: RHEUMATOID ARTHRITIS
     Dosage: 25 MG, 2X/DAY
     Route: 048
     Dates: start: 20160121, end: 201704
  2. RHEUMATREX [Suspect]
     Active Substance: METHOTREXATE SODIUM
     Indication: RHEUMATOID ARTHRITIS
     Dosage: 10 MG, UNK
     Route: 048
     Dates: start: 201205, end: 201704

REACTIONS (1)
  - B-cell lymphoma [Recovered/Resolved]
